FAERS Safety Report 4899432-7 (Version None)
Quarter: 2006Q1

REPORT INFORMATION
  Report Type: 
  Country: None (occurrence: None)
  Receive Date: 20060131
  Receipt Date: 20060117
  Transmission Date: 20060701
  Serious: Yes (Hospitalization)
  Sender: FDA-Public Use
  Company Number: DSA_26794_2005

PATIENT
  Age: 81 Year
  Sex: Female

DRUGS (11)
  1. TEMESTA [Suspect]
     Indication: ANXIETY
     Dosage: 1 MG Q DAY PO
     Route: 048
     Dates: end: 20041014
  2. LASILIX [Suspect]
     Indication: HYPERTENSION
     Dosage: DF PO
     Route: 048
     Dates: end: 20041014
  3. LASILIX [Suspect]
     Indication: HYPERTENSION
     Dosage: DF PO
     Route: 048
     Dates: start: 20041015
  4. PROZAC [Suspect]
     Indication: DYSTHYMIC DISORDER
     Dosage: DF PO
     Route: 048
     Dates: end: 20041016
  5. TOPALGIC [Suspect]
     Dosage: DF PO
     Route: 048
     Dates: end: 20041001
  6. ALDACTONE/POTASSIUM CANRENOATE [Suspect]
     Dosage: DF
  7. LEXOMIL [Suspect]
     Dosage: DF PO
     Route: 048
  8. MOPRAL [Concomitant]
  9. DIFFU K [Concomitant]
  10. DISCOTRINE [Concomitant]
  11. PREVISCAN [Concomitant]

REACTIONS (10)
  - AGITATION [None]
  - ATRIAL FIBRILLATION [None]
  - BUNDLE BRANCH BLOCK LEFT [None]
  - COMPUTERISED TOMOGRAM ABNORMAL [None]
  - CONDITION AGGRAVATED [None]
  - CONFUSIONAL STATE [None]
  - DRUG INTERACTION [None]
  - ELECTROCARDIOGRAM T WAVE INVERSION [None]
  - ELECTROENCEPHALOGRAM ABNORMAL [None]
  - HYPONATRAEMIA [None]
